FAERS Safety Report 24377180 (Version 4)
Quarter: 2024Q4

REPORT INFORMATION
  Report Type: Report from Study
  Country: US (occurrence: US)
  Receive Date: 20240930
  Receipt Date: 20241118
  Transmission Date: 20250114
  Serious: Yes (Hospitalization)
  Sender: ABBVIE
  Company Number: US-ABBVIE-5937983

PATIENT
  Age: 67 Year
  Sex: Female
  Weight: 66 kg

DRUGS (2)
  1. HUMIRA [Suspect]
     Active Substance: ADALIMUMAB
     Indication: Erythema nodosum
     Dosage: 40 MG FORM STRENGTH?CITRATE FREE
     Route: 058
     Dates: start: 20221124, end: 20231001
  2. HUMIRA [Suspect]
     Active Substance: ADALIMUMAB
     Dosage: 40 MG FORM STRENGTH?CITRATE FREE
     Route: 058
     Dates: start: 20240915, end: 20240929

REACTIONS (9)
  - Limb mass [Recovered/Resolved]
  - Pulmonary sepsis [Recovered/Resolved]
  - Diabetes mellitus [Recovered/Resolved]
  - Off label use [Unknown]
  - Pulmonary sepsis [Recovered/Resolved]
  - Respiratory failure [Recovered/Resolved]
  - Renal failure [Recovered/Resolved]
  - Abdominal wall haematoma [Recovered/Resolved]
  - Oedematous kidney [Recovered/Resolved]

NARRATIVE: CASE EVENT DATE: 20221124
